FAERS Safety Report 8170845-3 (Version None)
Quarter: 2012Q1

REPORT INFORMATION
  Report Type: 
  Country: None (occurrence: None)
  Receive Date: 20120228
  Receipt Date: 20120223
  Transmission Date: 20120608
  Serious: Yes (Disabling, Other)
  Sender: FDA-Public Use
  Company Number: US-BAYER-2012-018294

PATIENT
  Sex: Female

DRUGS (1)
  1. DROSPIRENONE AND ETHINYL ESTRADIOL [Suspect]
     Dosage: UNK
     Dates: start: 20081104, end: 20100201

REACTIONS (4)
  - CHOLELITHIASIS [None]
  - ANXIETY [None]
  - ABDOMINAL PAIN [None]
  - PAIN [None]
